FAERS Safety Report 16940897 (Version 1)
Quarter: 2019Q4

REPORT INFORMATION
  Report Type: Spontaneous
  Country: US (occurrence: US)
  Receive Date: 20190828
  Receipt Date: 20190828
  Transmission Date: 20200122
  Serious: No
  Sender: FDA-Public Use
  Company Number: None

PATIENT
  Age: 66 Year
  Sex: Male
  Weight: 76.37 kg

DRUGS (2)
  1. TAXOTERE [Suspect]
     Active Substance: DOCETAXEL
     Dates: end: 20190731
  2. CASODEX [Suspect]
     Active Substance: BICALUTAMIDE
     Dates: end: 20190731

REACTIONS (2)
  - Loss of personal independence in daily activities [None]
  - Mobility decreased [None]

NARRATIVE: CASE EVENT DATE: 20190802
